FAERS Safety Report 5771265-9 (Version None)
Quarter: 2008Q2

REPORT INFORMATION
  Report Type: 
  Country: None (occurrence: None)
  Receive Date: 20080612
  Receipt Date: 20080612
  Transmission Date: 20081010
  Serious: No
  Sender: FDA-Public Use
  Company Number: None

PATIENT
  Sex: Female
  Weight: 82.5547 kg

DRUGS (5)
  1. BUPROPION HCL [Suspect]
     Indication: DEPRESSION
     Dosage: 300 MG ONCE DAILY PO
     Route: 048
     Dates: start: 20030101
  2. PAXIL [Concomitant]
  3. LEXAPRO [Concomitant]
  4. CYMBALTA [Concomitant]
  5. WELLBUTRIN XL [Suspect]

REACTIONS (2)
  - RASH [None]
  - URTICARIA [None]
